FAERS Safety Report 8023712-X (Version None)
Quarter: 2012Q1

REPORT INFORMATION
  Report Type: 
  Country: None (occurrence: None)
  Receive Date: 20120105
  Receipt Date: 20111228
  Transmission Date: 20120608
  Serious: Yes (Other)
  Sender: FDA-Public Use
  Company Number: US-BAYER-2011-020027

PATIENT
  Age: 31 Year
  Sex: Female
  Weight: 104.76 kg

DRUGS (4)
  1. YASMIN [Suspect]
     Indication: PRODUCT USED FOR UNKNOWN INDICATION
     Dosage: UNK
     Route: 048
     Dates: start: 20000101, end: 20080101
  2. MULTI FOR HER [Concomitant]
     Route: 048
  3. PHENTERMINE HYDROCHLORIDE [Concomitant]
     Dosage: 37.5 MG, UNK
     Route: 048
  4. CITALOPRAM HYDROBROMIDE [Concomitant]
     Dosage: 20 MG, UNK
     Route: 048

REACTIONS (6)
  - GALLBLADDER NON-FUNCTIONING [None]
  - INJURY [None]
  - DEEP VEIN THROMBOSIS [None]
  - PAIN [None]
  - PREGNANCY [None]
  - CHOLECYSTITIS CHRONIC [None]
